FAERS Safety Report 10984052 (Version 1)
Quarter: 2015Q2

REPORT INFORMATION
  Report Type: Spontaneous
  Country: US (occurrence: None)
  Receive Date: 20150401
  Receipt Date: 20150401
  Transmission Date: 20150821
  Serious: Yes (Other)
  Sender: FDA-Public Use
  Company Number: 54973 AE # 1602

PATIENT
  Sex: Female

DRUGS (1)
  1. BABY TEETHING [Suspect]
     Active Substance: ARABICA COFFEE BEAN\ATROPA BELLADONNA\CALCIUM PHOSPHATE\CHAMOMILE
     Indication: TEETHING

REACTIONS (8)
  - Haematochezia [None]
  - Mouth haemorrhage [None]
  - Oral mucosal blistering [None]
  - Oropharyngeal blistering [None]
  - Blister [None]
  - Haemorrhoids [None]
  - Gastrointestinal disorder [None]
  - Painful defaecation [None]

NARRATIVE: CASE EVENT DATE: 201405
